FAERS Safety Report 5417724-X (Version None)
Quarter: 2007Q3

REPORT INFORMATION
  Report Type: 
  Country: None (occurrence: None)
  Receive Date: 20070815
  Receipt Date: 20070815
  Transmission Date: 20080115
  Serious: No
  Sender: FDA-Public Use
  Company Number: None

PATIENT
  Sex: Female
  Weight: 68.0396 kg

DRUGS (16)
  1. HYDROCHLOROTHIAZIDE [Suspect]
     Indication: HYPERTENSION
     Dosage: PO  (THERAPY DATES: PRIOR TO ADMISSION)
     Route: 048
  2. ASPIRIN [Concomitant]
  3. LIPITOR [Concomitant]
  4. CYMBALTA [Concomitant]
  5. SELEGILINE HCL [Concomitant]
  6. PLAVIX [Concomitant]
  7. SINEMET [Concomitant]
  8. SINEMET CR [Concomitant]
  9. PROTONIX [Concomitant]
  10. ARTANE [Concomitant]
  11. KLONOPIN [Concomitant]
  12. PROVIGIL [Concomitant]
  13. ISOSORBIDE DINITRATE [Concomitant]
  14. XANAX [Concomitant]
  15. XOPENEX [Concomitant]
  16. ASTHMANEX [Concomitant]

REACTIONS (2)
  - HYPONATRAEMIA [None]
  - LETHARGY [None]
